FAERS Safety Report 18309121 (Version 1)
Quarter: 2020Q3

REPORT INFORMATION
  Report Type: Spontaneous
  Country: US (occurrence: US)
  Receive Date: 20200925
  Receipt Date: 20200925
  Transmission Date: 20201103
  Serious: No
  Sender: FDA-Public Use
  Company Number: US-AUROBINDO-AUR-APL-2019-056681

PATIENT
  Age: 65 Year
  Sex: Female

DRUGS (1)
  1. ALENDRONATE SODIUM TABLETS USP 70MG [Suspect]
     Active Substance: ALENDRONATE SODIUM
     Indication: PRODUCT USED FOR UNKNOWN INDICATION
     Dosage: 1 DOSAGE FORM, DAILY INSTEAD OF 1 TABLET WEEKLY
     Route: 048
     Dates: start: 20190809

REACTIONS (4)
  - Abdominal pain upper [Unknown]
  - Headache [Unknown]
  - Wrong technique in product usage process [Unknown]
  - Overdose [Unknown]
